FAERS Safety Report 15169545 (Version 2)
Quarter: 2018Q3

REPORT INFORMATION
  Report Type: Spontaneous
  Country: PL (occurrence: PL)
  Receive Date: 20180720
  Receipt Date: 20180828
  Transmission Date: 20181010
  Serious: Yes (Life-Threatening)
  Sender: FDA-Public Use
  Company Number: PL-TEVA-2018-PL-927413

PATIENT
  Age: 65 Year
  Sex: Female
  Weight: 32 kg

DRUGS (1)
  1. VORICONAZOLE. [Suspect]
     Active Substance: VORICONAZOLE
     Indication: FUNGAL INFECTION
     Dosage: DOSAGE OF THE DRUG: DAY I: 2 X 200 MG, DAY II: 2 X 100 MG, DAY III: 1 X 100 MG
     Route: 048
     Dates: start: 20180201

REACTIONS (2)
  - Hallucination, visual [Recovered/Resolved]
  - Arrhythmia [Recovered/Resolved]

NARRATIVE: CASE EVENT DATE: 20180201
